FAERS Safety Report 6523592-5 (Version None)
Quarter: 2009Q4

REPORT INFORMATION
  Report Type: 
  Country: None (occurrence: None)
  Receive Date: 20091231
  Receipt Date: 20091223
  Transmission Date: 20100525
  Serious: Yes (Hospitalization)
  Sender: FDA-Public Use
  Company Number: PHHY2009CA58126

PATIENT
  Sex: Female

DRUGS (1)
  1. DIOVAN [Suspect]
     Dosage: 1 TABLET A DAY
     Route: 048
     Dates: start: 20091211

REACTIONS (2)
  - COLITIS [None]
  - GASTROINTESTINAL INFECTION [None]
